FAERS Safety Report 25148776 (Version 1)
Quarter: 2025Q2

REPORT INFORMATION
  Report Type: Spontaneous
  Country: IN (occurrence: IN)
  Receive Date: 20250402
  Receipt Date: 20250402
  Transmission Date: 20250716
  Serious: Yes (Other)
  Sender: ZYDUS PHARM
  Company Number: IN-CADILA HEALTHCARE LIMITED-IN-ZYDUS-121200

PATIENT

DRUGS (11)
  1. DICLOFENAC [Suspect]
     Active Substance: DICLOFENAC
     Indication: Spinal anaesthesia
     Route: 042
  2. DICLOFENAC [Suspect]
     Active Substance: DICLOFENAC
     Indication: General anaesthesia
  3. FENTANYL [Suspect]
     Active Substance: FENTANYL
     Indication: Spinal anaesthesia
     Route: 042
  4. FENTANYL [Suspect]
     Active Substance: FENTANYL
     Indication: General anaesthesia
  5. MIDAZOLAM [Suspect]
     Active Substance: MIDAZOLAM
     Indication: Spinal anaesthesia
     Route: 042
  6. MIDAZOLAM [Suspect]
     Active Substance: MIDAZOLAM
     Indication: General anaesthesia
  7. BUPIVACAINE [Suspect]
     Active Substance: BUPIVACAINE
     Indication: Spinal anaesthesia
     Route: 065
  8. BUPIVACAINE [Suspect]
     Active Substance: BUPIVACAINE
     Indication: General anaesthesia
  9. ONDANSETRON [Suspect]
     Active Substance: ONDANSETRON
     Indication: Spinal anaesthesia
     Route: 042
  10. ONDANSETRON [Suspect]
     Active Substance: ONDANSETRON
     Indication: General anaesthesia
  11. LACTATED RINGERS SOLUTION [Concomitant]
     Active Substance: CALCIUM CHLORIDE\POTASSIUM CHLORIDE\SODIUM CHLORIDE\SODIUM LACTATE
     Indication: Product used for unknown indication
     Route: 042

REACTIONS (1)
  - Acute postoperative sialadenitis [Recovered/Resolved]
